FAERS Safety Report 10963472 (Version 1)
Quarter: 2015Q1

REPORT INFORMATION
  Report Type: Spontaneous
  Country: US (occurrence: None)
  Receive Date: 20150226
  Receipt Date: 20150226
  Transmission Date: 20150721
  Serious: No
  Sender: FDA-Public Use
  Company Number: TPA2009A03012

PATIENT
  Age: 84 Year
  Sex: Male
  Weight: 84.37 kg

DRUGS (15)
  1. DIOVAN [Concomitant]
     Active Substance: VALSARTAN
  2. PANTOPRAZOLE [Concomitant]
     Active Substance: PANTOPRAZOLE SODIUM
  3. FLOMAX (TAMSULOSIN) [Concomitant]
  4. WARFARIN [Concomitant]
     Active Substance: WARFARIN
  5. ASMANEX [Concomitant]
     Active Substance: MOMETASONE FUROATE
  6. FLUTICASONE PROPIONATE. [Concomitant]
     Active Substance: FLUTICASONE PROPIONATE
  7. ENBREL [Concomitant]
     Active Substance: ETANERCEPT
  8. COREG [Concomitant]
     Active Substance: CARVEDILOL
  9. LIPITOR [Suspect]
     Active Substance: ATORVASTATIN CALCIUM
     Indication: BLOOD CHOLESTEROL INCREASED
     Route: 048
     Dates: start: 20040930, end: 200909
  10. ALBUTEROL (SALBUTAMOL) [Concomitant]
     Active Substance: ALBUTEROL
  11. COLCHICINE. [Concomitant]
     Active Substance: COLCHICINE
  12. ULORIC [Suspect]
     Active Substance: FEBUXOSTAT
     Indication: GOUT
     Route: 048
     Dates: start: 20090831, end: 200909
  13. DIGOXIN. [Concomitant]
     Active Substance: DIGOXIN
  14. FUROSEMIDE (FUROSEMIDE) [Suspect]
     Active Substance: FUROSEMIDE
     Indication: DIURETIC THERAPY
     Route: 048
     Dates: end: 200909
  15. EPLERENONE. [Concomitant]
     Active Substance: EPLERENONE

REACTIONS (4)
  - Blood sodium decreased [None]
  - Pain in extremity [None]
  - Condition aggravated [None]
  - Muscle spasms [None]

NARRATIVE: CASE EVENT DATE: 200909
